FAERS Safety Report 6211181-1 (Version None)
Quarter: 2009Q2

REPORT INFORMATION
  Report Type: 
  Country: None (occurrence: None)
  Receive Date: 20090602
  Receipt Date: 20080321
  Transmission Date: 20091009
  Serious: Yes (Other)
  Sender: FDA-Public Use
  Company Number: US-ASTRAZENECA-2007UW18093

PATIENT
  Age: 15458 Day
  Sex: Female

DRUGS (13)
  1. SEROQUEL [Suspect]
     Indication: SLEEP DISORDER
     Dosage: 600 TO 800 MG EVERY DAY
     Route: 048
     Dates: start: 20040101, end: 20060415
  2. SEROQUEL [Suspect]
     Dosage: 25MG-600MG DAILY
     Route: 048
     Dates: start: 20041012
  3. ALPRAZOLAM [Concomitant]
     Route: 048
     Dates: start: 20040907
  4. LORTAB [Concomitant]
     Indication: PAIN
     Route: 048
     Dates: start: 20010612
  5. LEXAPRO [Concomitant]
     Route: 048
     Dates: start: 20040930
  6. NEURONTIN [Concomitant]
     Dosage: 400MG- 600MG DAILY
     Route: 048
     Dates: start: 20041012
  7. TOPAMAX [Concomitant]
     Route: 048
     Dates: start: 20050214
  8. MIRTAZAPINE [Concomitant]
     Route: 048
     Dates: start: 20041012
  9. HYDROCHLOROTHIAZIDE [Concomitant]
     Route: 048
     Dates: start: 20051221
  10. PRILOSEC [Concomitant]
     Route: 048
     Dates: start: 20050404
  11. HYDROXYZINE PAM [Concomitant]
     Route: 048
     Dates: start: 20050303
  12. PREVACID [Concomitant]
     Route: 048
     Dates: start: 20050105
  13. EFFEXOR XR [Concomitant]
     Dosage: 37.5MG- 150MG DAILY
     Route: 048
     Dates: start: 20041207

REACTIONS (2)
  - DIABETIC NEUROPATHY [None]
  - TYPE 2 DIABETES MELLITUS [None]
